FAERS Safety Report 12784517 (Version 4)
Quarter: 2019Q3

REPORT INFORMATION
  Report Type: Spontaneous
  Country: GB (occurrence: GB)
  Receive Date: 20160927
  Receipt Date: 20190922
  Transmission Date: 20191004
  Serious: Yes (Death, Hospitalization, Disabling, Other)
  Sender: FDA-Public Use
  Company Number: GB-009507513-1609GBR011631

PATIENT
  Age: 64 Year
  Sex: Female

DRUGS (2)
  1. KEYTRUDA [Suspect]
     Active Substance: PEMBROLIZUMAB
     Indication: MALIGNANT MELANOMA
     Dosage: 130 MG, ALSO REPORTED AS 2 MG/ KG, 3 WEEKS
     Route: 042
     Dates: start: 20160302, end: 20160504
  2. KEYTRUDA [Suspect]
     Active Substance: PEMBROLIZUMAB
     Indication: METASTATIC MALIGNANT MELANOMA
     Dosage: 130 MG, 3 WEEKS
     Route: 042
     Dates: start: 201606

REACTIONS (6)
  - General physical health deterioration [Unknown]
  - Malignant neoplasm progression [Fatal]
  - Pemphigoid [Recovered/Resolved]
  - Hepatic failure [Fatal]
  - Colitis [Unknown]
  - Lichen planus [Recovered/Resolved]

NARRATIVE: CASE EVENT DATE: 201606
